FAERS Safety Report 16315519 (Version 4)
Quarter: 2021Q2

REPORT INFORMATION
  Report Type: Report from Study
  Country: US (occurrence: US)
  Receive Date: 20190515
  Receipt Date: 20210408
  Transmission Date: 20210716
  Serious: No
  Sender: FDA-Public Use
  Company Number: PHEH2019US020416

PATIENT
  Age: 72 Year
  Sex: Female

DRUGS (1)
  1. COSENTYX [Suspect]
     Active Substance: SECUKINUMAB
     Indication: PSORIASIS
     Dosage: 300 MG, QMO
     Route: 058
     Dates: start: 20190308

REACTIONS (6)
  - Saliva altered [Unknown]
  - Limb discomfort [Unknown]
  - Product dose omission issue [Unknown]
  - Pain in extremity [Unknown]
  - Burning sensation [Unknown]
  - Concomitant disease aggravated [Unknown]

NARRATIVE: CASE EVENT DATE: 20190408
